FAERS Safety Report 6339467-0 (Version None)
Quarter: 2009Q3

REPORT INFORMATION
  Report Type: 
  Country: None (occurrence: None)
  Receive Date: 20090903
  Receipt Date: 20090809
  Transmission Date: 20100115
  Serious: No
  Sender: FDA-Public Use
  Company Number: US-ROCHE-649595

PATIENT
  Weight: 86.2 kg

DRUGS (1)
  1. TAMIFLU [Suspect]
     Route: 065
     Dates: start: 20090809

REACTIONS (5)
  - FLATULENCE [None]
  - MEDICATION ERROR [None]
  - NAUSEA [None]
  - OROPHARYNGEAL PAIN [None]
  - PYREXIA [None]
